FAERS Safety Report 4505849-2 (Version None)
Quarter: 2004Q4

REPORT INFORMATION
  Report Type: 
  Country: None (occurrence: None)
  Receive Date: 20041119
  Receipt Date: 20041013
  Transmission Date: 20050328
  Serious: Yes (Hospitalization)
  Sender: FDA-Public Use
  Company Number: PHEH2004US11014

PATIENT
  Age: 63 Year
  Sex: Male
  Weight: 86 kg

DRUGS (5)
  1. LAMISIL [Suspect]
     Indication: NAIL TINEA
     Dosage: 250 MG, QD
     Route: 048
     Dates: start: 20040805, end: 20041011
  2. LANTUS [Concomitant]
  3. NOVOLOG [Concomitant]
  4. SYNTHROID [Concomitant]
  5. LEVOTHROID [Concomitant]

REACTIONS (7)
  - BALANCE DISORDER [None]
  - CONTUSION [None]
  - PAIN IN EXTREMITY [None]
  - PLATELET COUNT DECREASED [None]
  - SPLENECTOMY [None]
  - THROMBOCYTOPENIA [None]
  - VISION BLURRED [None]
